FAERS Safety Report 8539826-1 (Version None)
Quarter: 2012Q2

REPORT INFORMATION
  Report Type: 
  Country: None (occurrence: None)
  Receive Date: 20120412
  Receipt Date: 20090527
  Transmission Date: 20120825
  Serious: Yes (Other)
  Sender: FDA-Public Use
  Company Number: PHEH2009US04309

PATIENT
  Sex: Male

DRUGS (1)
  1. CLOZARIL [Suspect]
     Dosage: 100 MG AM, 350 MG HS, ORAL
     Route: 048
     Dates: end: 20090401

REACTIONS (1)
  - WHITE BLOOD CELL COUNT DECREASED [None]
